FAERS Safety Report 5656134-7 (Version None)
Quarter: 2008Q1

REPORT INFORMATION
  Report Type: 
  Country: None (occurrence: None)
  Receive Date: 20080305
  Receipt Date: 20080220
  Transmission Date: 20080703
  Serious: Yes (Death)
  Sender: FDA-Public Use
  Company Number: RENA-1000028

PATIENT
  Age: 56 Year
  Sex: Female

DRUGS (10)
  1. RENAGEL [Suspect]
     Indication: HYPERPHOSPHATAEMIA
     Dosage: 3.2 G, TID, ORAL
     Route: 048
     Dates: start: 20070227
  2. FOSRENOL [Concomitant]
  3. ACETAMINOPHEN [Concomitant]
  4. NEPHROCAPS (FOLIC ACID, VITAMINS NOS) [Concomitant]
  5. NIZORAL [Concomitant]
  6. CLONIDINE [Concomitant]
  7. RANITIDINE [Concomitant]
  8. BENICAR [Concomitant]
  9. NOVOLOG [Concomitant]
  10. METOPROLOL TARTRATE [Concomitant]

REACTIONS (2)
  - ACUTE MYOCARDIAL INFARCTION [None]
  - SUDDEN DEATH [None]
